FAERS Safety Report 10769327 (Version 1)
Quarter: 2015Q1

REPORT INFORMATION
  Report Type: Spontaneous
  Country: US (occurrence: US)
  Receive Date: 20150206
  Receipt Date: 20150206
  Transmission Date: 20150721
  Serious: Yes (Other)
  Sender: FDA-Public Use
  Company Number: US-UCBSA-2014010925

PATIENT
  Age: 85 Year
  Sex: Female
  Weight: 56 kg

DRUGS (5)
  1. NEUPRO [Suspect]
     Active Substance: ROTIGOTINE
     Indication: PARKINSON^S DISEASE
     Dosage: 4 MG, ONCE DAILY (QD)
     Route: 062
     Dates: start: 2012, end: 2013
  2. NEUPRO [Suspect]
     Active Substance: ROTIGOTINE
     Dosage: 6 MG, ONCE DAILY (QD)
     Route: 062
     Dates: start: 2013
  3. CARBIDOPA/LEVODOPA [Concomitant]
     Active Substance: CARBIDOPA\LEVODOPA
     Indication: PARKINSON^S DISEASE
     Dosage: 50/200MG, 1 AT HS, ROUTE TD
  4. PANTOPRAZOLE [Concomitant]
     Active Substance: PANTOPRAZOLE SODIUM
     Indication: PROPHYLAXIS
     Dosage: UNK
     Route: 048
     Dates: start: 201311
  5. CARBIDOPA/LEVODOPA [Concomitant]
     Active Substance: CARBIDOPA\LEVODOPA
     Indication: PARKINSON^S DISEASE
     Dosage: 25/100MG,2 TABS EVERY 3 HOURS FOR A TOTAL DOSE OF 12 TABS DAILY

REACTIONS (11)
  - Precancerous cells present [Not Recovered/Not Resolved]
  - Herpes zoster [Recovering/Resolving]
  - Application site reaction [Recovering/Resolving]
  - Application site pain [Not Recovered/Not Resolved]
  - Generalised erythema [Not Recovered/Not Resolved]
  - Neoplasm malignant [Not Recovered/Not Resolved]
  - Application site erythema [Not Recovered/Not Resolved]
  - Emotional disorder [Unknown]
  - Pruritus generalised [Not Recovered/Not Resolved]
  - Drug ineffective [Unknown]
  - Application site pruritus [Not Recovered/Not Resolved]

NARRATIVE: CASE EVENT DATE: 2012
